FAERS Safety Report 10995354 (Version 1)
Quarter: 2015Q2

REPORT INFORMATION
  Report Type: Spontaneous
  Country: FR (occurrence: FR)
  Receive Date: 20150407
  Receipt Date: 20150407
  Transmission Date: 20150821
  Serious: Yes (Hospitalization)
  Sender: FDA-Public Use
  Company Number: FR-SYMPLMED PHARMACEUTICALS-2014SYM00195

PATIENT
  Age: 82 Year
  Sex: Female

DRUGS (1)
  1. ACEON [Suspect]
     Active Substance: PERINDOPRIL ERBUMINE
     Indication: PRODUCT USED FOR UNKNOWN INDICATION
     Dosage: UNK
     Route: 048
     Dates: start: 201304, end: 201410

REACTIONS (3)
  - Rash papular [Recovered/Resolved]
  - Angioedema [Recovered/Resolved]
  - Stress [None]

NARRATIVE: CASE EVENT DATE: 20141001
